FAERS Safety Report 21712366 (Version 1)
Quarter: 2022Q4

REPORT INFORMATION
  Report Type: Spontaneous
  Country: US (occurrence: None)
  Receive Date: 20221209
  Receipt Date: 20221209
  Transmission Date: 20230113
  Serious: No
  Sender: FDA-Public Use
  Company Number: None

PATIENT
  Age: 54 Year
  Sex: Female
  Weight: 127.35 kg

DRUGS (9)
  1. LAGEVRIO [Suspect]
     Active Substance: MOLNUPIRAVIR
     Indication: COVID-19
     Dosage: FREQUENCY : TWICE A DAY;?
     Route: 048
     Dates: start: 20221208, end: 20221209
  2. low dose aspirin 81mg once daily PO [Concomitant]
     Dates: start: 20201209
  3. fluticason 50mcg Intranasally once daily [Concomitant]
     Dates: start: 20181209
  4. potassium tropical cbd/thc 20 MEQ twice daily [Concomitant]
     Dates: start: 20181209
  5. Atenolol Hydrochlorothiazide 50-25mg once daily [Concomitant]
     Dates: start: 20181209
  6. levothyroxine 75mg PO once daily [Concomitant]
     Dates: start: 20181209
  7. advair 230mcg PO twice daily [Concomitant]
     Dates: start: 20181209
  8. omeprozole 40mg PO once daily [Concomitant]
     Dates: start: 20211209
  9. clorazepam .5mg PO PRN [Concomitant]
     Dates: start: 20211209

REACTIONS (2)
  - Lymphadenopathy [None]
  - Rash [None]

NARRATIVE: CASE EVENT DATE: 20221209
